FAERS Safety Report 6585077-X (Version None)
Quarter: 2010Q1

REPORT INFORMATION
  Report Type: 
  Country: None (occurrence: None)
  Receive Date: 20100217
  Receipt Date: 20100208
  Transmission Date: 20100710
  Serious: Yes (Other)
  Sender: FDA-Public Use
  Company Number: US-ASTRAZENECA-2009SE31091

PATIENT
  Age: 31649 Day
  Sex: Female
  Weight: 78 kg

DRUGS (1)
  1. FASLODEX [Suspect]
     Route: 030
     Dates: start: 20091204, end: 20091204

REACTIONS (2)
  - SKIN LACERATION [None]
  - SYRINGE ISSUE [None]
